FAERS Safety Report 6080005-8 (Version None)
Quarter: 2009Q1

REPORT INFORMATION
  Report Type: 
  Country: None (occurrence: None)
  Receive Date: 20090217
  Receipt Date: 20090120
  Transmission Date: 20090719
  Serious: No
  Sender: FDA-Public Use
  Company Number: A0764178A

PATIENT
  Age: 61 Year
  Sex: Female

DRUGS (10)
  1. COREG CR [Suspect]
     Indication: HYPERTENSION
     Dosage: 20MG PER DAY
     Route: 048
     Dates: start: 20090113
  2. PRILOSEC [Concomitant]
  3. UNKNOWN MEDICATION [Concomitant]
  4. LANTUS [Concomitant]
  5. HUMALOG [Concomitant]
  6. DIOVAN [Concomitant]
  7. TEKTURNA [Concomitant]
  8. SPIRIVA [Concomitant]
  9. CRESTOR [Concomitant]
  10. LASIX [Concomitant]

REACTIONS (2)
  - BLOOD GLUCOSE INCREASED [None]
  - WEIGHT INCREASED [None]
